APPROVED DRUG PRODUCT: VERKAZIA
Active Ingredient: CYCLOSPORINE
Strength: 0.1%
Dosage Form/Route: EMULSION;OPHTHALMIC
Application: N214965 | Product #001
Applicant: HARROW EYE LLC
Approved: Jun 23, 2021 | RLD: Yes | RS: Yes | Type: RX

PATENTS:
Patent 11612658 | Expires: Jan 27, 2026
Patent 8298568 | Expires: Nov 3, 2027
Patent 9132071 | Expires: Jun 2, 2029
Patent 9220694 | Expires: Jan 27, 2026
Patent 9956289 | Expires: Jan 27, 2026
Patent 7973081 | Expires: Jan 27, 2026
Patent 8524779 | Expires: Jan 27, 2026

EXCLUSIVITY:
Code: ODE-358 | Date: Jun 23, 2028